FAERS Safety Report 9033151 (Version 1)
Quarter: 2013Q1

REPORT INFORMATION
  Report Type: Spontaneous
  Country: US (occurrence: US)
  Receive Date: 20130128
  Receipt Date: 20130128
  Transmission Date: 20140127
  Serious: No
  Sender: FDA-Public Use
  Company Number: US-TEVA-381792USA

PATIENT
  Age: 36 Year
  Sex: Male
  Weight: 113.5 kg

DRUGS (2)
  1. PLAN B ONE-STEP [Suspect]
     Dosage: 1.5 MILLIGRAM DAILY;
     Route: 048
     Dates: start: 20130117, end: 20130117
  2. MEDICAL MARIJUANA [Concomitant]
     Indication: LUNG NEOPLASM MALIGNANT

REACTIONS (3)
  - Wrong drug administered [Unknown]
  - Penile pain [Not Recovered/Not Resolved]
  - Penile swelling [Not Recovered/Not Resolved]
